FAERS Safety Report 6153581-4 (Version None)
Quarter: 2009Q2

REPORT INFORMATION
  Report Type: 
  Country: None (occurrence: None)
  Receive Date: 20090409
  Receipt Date: 20090325
  Transmission Date: 20091009
  Serious: Yes (Life-Threatening)
  Sender: FDA-Public Use
  Company Number: 2009000921

PATIENT
  Age: 65 Year
  Sex: Female

DRUGS (6)
  1. TARCEVA [Suspect]
     Indication: NON-SMALL CELL LUNG CANCER
     Dosage: (150 MG,QD),ORAL
     Route: 048
     Dates: start: 20090107, end: 20090301
  2. DELTACORTONE (PREDNISONE) [Concomitant]
  3. LANSOPRAZOLE [Concomitant]
  4. MS CONTIN [Concomitant]
  5. AULIN (NIMESULIDE) [Concomitant]
  6. LYRICA [Concomitant]

REACTIONS (2)
  - INTESTINAL PERFORATION [None]
  - RASH [None]
